FAERS Safety Report 17930457 (Version 1)
Quarter: 2020Q2

REPORT INFORMATION
  Report Type: Spontaneous
  Country: US (occurrence: US)
  Receive Date: 20200623
  Receipt Date: 20200623
  Transmission Date: 20200714
  Serious: Yes (Hospitalization)
  Sender: FDA-Public Use
  Company Number: US-AMNEAL PHARMACEUTICALS-2020-AMRX-01792

PATIENT
  Age: 63 Year
  Sex: Female

DRUGS (1)
  1. NOREPINEPHRINE BITARTRATE. [Suspect]
     Active Substance: NOREPINEPHRINE BITARTRATE
     Indication: SEPTIC SHOCK
     Dosage: 10 MICROGRAM/KILOGRAM/MIN

REACTIONS (3)
  - Accidental overdose [Unknown]
  - Atrial flutter [Recovered/Resolved]
  - Stress cardiomyopathy [Recovered/Resolved]
